FAERS Safety Report 5975287-4 (Version None)
Quarter: 2008Q4

REPORT INFORMATION
  Report Type: 
  Country: None (occurrence: None)
  Receive Date: 20081202
  Receipt Date: 20081120
  Transmission Date: 20090506
  Serious: Yes (Hospitalization, Disabling, Other)
  Sender: FDA-Public Use
  Company Number: NO-BAYER-NO-2007-034183

PATIENT
  Age: 25 Year
  Sex: Female

DRUGS (1)
  1. YASMIN [Suspect]
     Indication: ORAL CONTRACEPTION
     Route: 048
     Dates: start: 20020101, end: 20070531

REACTIONS (8)
  - APHASIA [None]
  - CEREBRAL ARTERY THROMBOSIS [None]
  - CONFUSIONAL STATE [None]
  - CONVULSION [None]
  - EPILEPSY [None]
  - FACIAL PARESIS [None]
  - FATIGUE [None]
  - LOSS OF CONSCIOUSNESS [None]
